FAERS Safety Report 11290207 (Version 2)
Quarter: 2015Q3

REPORT INFORMATION
  Report Type: Spontaneous
  Country: US (occurrence: US)
  Receive Date: 20150721
  Receipt Date: 20150722
  Transmission Date: 20151125
  Serious: No
  Sender: FDA-Public Use
  Company Number: US-ELI_LILLY_AND_COMPANY-US201507003918

PATIENT
  Sex: Female

DRUGS (6)
  1. PROZAC [Concomitant]
     Active Substance: FLUOXETINE HYDROCHLORIDE
     Dosage: UNK, UNKNOWN
     Route: 065
  2. CYMBALTA [Suspect]
     Active Substance: DULOXETINE HYDROCHLORIDE
     Indication: DEPRESSION
     Dosage: UNK, UNKNOWN
     Route: 065
  3. ADDERALL [Concomitant]
     Active Substance: AMPHETAMINE ASPARTATE\AMPHETAMINE SULFATE\DEXTROAMPHETAMINE SACCHARATE\DEXTROAMPHETAMINE SULFATE
     Dosage: UNK, UNKNOWN
     Route: 065
  4. PROVIGIL [Concomitant]
     Active Substance: MODAFINIL
     Dosage: UNK, UNKNOWN
     Route: 065
  5. ACYCLOVIR                          /00587301/ [Concomitant]
     Active Substance: ACYCLOVIR
     Dosage: UNK, UNKNOWN
     Route: 065
  6. MINERALS [Concomitant]
     Active Substance: MINERALS
     Dosage: UNK, UNKNOWN
     Route: 065

REACTIONS (3)
  - Drug withdrawal syndrome [Unknown]
  - Migraine [Unknown]
  - Vomiting [Unknown]
